FAERS Safety Report 5148525-8 (Version None)
Quarter: 2006Q4

REPORT INFORMATION
  Report Type: 
  Country: None (occurrence: None)
  Receive Date: 20061107
  Receipt Date: 20061023
  Transmission Date: 20070319
  Serious: Yes (Hospitalization)
  Sender: FDA-Public Use
  Company Number: 230008M06AUS

PATIENT
  Age: 53 Year
  Sex: Female
  Weight: 55 kg

DRUGS (2)
  1. REBIF [Suspect]
     Indication: MULTIPLE SCLEROSIS
     Dosage: 0.1 ML, 3 IN 1 WEEKS, SUBCUTANEOUS
     Route: 058
     Dates: start: 20061010, end: 20061022
  2. PROCHLORPERAZINE /00013301/ [Concomitant]

REACTIONS (4)
  - BALANCE DISORDER [None]
  - CONDITION AGGRAVATED [None]
  - INFLUENZA LIKE ILLNESS [None]
  - VISION BLURRED [None]
